FAERS Safety Report 7198886-3 (Version None)
Quarter: 2010Q4

REPORT INFORMATION
  Report Type: 
  Country: None (occurrence: None)
  Receive Date: 20101227
  Receipt Date: 20101221
  Transmission Date: 20110411
  Serious: Yes (Hospitalization)
  Sender: FDA-Public Use
  Company Number: JP-ALLERGAN-1013212US

PATIENT
  Age: 2 Year
  Sex: Female
  Weight: 10 kg

DRUGS (2)
  1. BOTOX INJECTION 100 [Suspect]
     Indication: TORTICOLLIS
     Dosage: 25 UNITS, SINGLE
     Route: 030
     Dates: start: 20080725, end: 20080725
  2. INDERAL [Concomitant]
     Indication: CARDIAC FAILURE
     Route: 048

REACTIONS (2)
  - HYPOXIA [None]
  - OXYGEN SATURATION DECREASED [None]
